FAERS Safety Report 26107050 (Version 1)
Quarter: 2025Q4

REPORT INFORMATION
  Report Type: Spontaneous
  Country: US (occurrence: None)
  Receive Date: 20251126
  Receipt Date: 20251126
  Transmission Date: 20260118
  Serious: Yes (Life-Threatening, Hospitalization, Other)
  Sender: FDA-CTU
  Company Number: None

PATIENT
  Age: 35 Year
  Sex: Female
  Weight: 51.75 kg

DRUGS (10)
  1. QUETIAPINE [Suspect]
     Active Substance: QUETIAPINE
  2. BENADRYL [Suspect]
     Active Substance: DIPHENHYDRAMINE HYDROCHLORIDE
  3. HALDOL [Suspect]
     Active Substance: HALOPERIDOL
  4. ATIVAN [Suspect]
     Active Substance: LORAZEPAM
  5. ONDANSETRON [Suspect]
     Active Substance: ONDANSETRON
  6. GUAIFENESIN [Suspect]
     Active Substance: GUAIFENESIN
  7. ACETAMINOPHEN [Suspect]
     Active Substance: ACETAMINOPHEN
  8. MAGNESIUM HYDROXIDE [Suspect]
     Active Substance: MAGNESIUM HYDROXIDE
  9. HYDROXYZINE [Suspect]
     Active Substance: HYDROXYZINE HYDROCHLORIDE
  10. MAG-AL LIQUID [Suspect]
     Active Substance: ALUMINUM HYDROXIDE\MAGNESIUM HYDROXIDE

REACTIONS (8)
  - Medication error [None]
  - Overdose [None]
  - Adverse event [None]
  - Hyporesponsive to stimuli [None]
  - Toxicity to various agents [None]
  - Sedation complication [None]
  - Loss of consciousness [None]
  - Contraindicated product administered [None]

NARRATIVE: CASE EVENT DATE: 20250706
